FAERS Safety Report 15988968 (Version 4)
Quarter: 2019Q2

REPORT INFORMATION
  Report Type: Other
  Country: NL (occurrence: GR)
  Receive Date: 20190221
  Receipt Date: 20190412
  Transmission Date: 20190711
  Serious: Yes (Other)
  Sender: FDA-Public Use
  Company Number: GB-DIMETHAID UK LIMITED-DIM-001168-2019

PATIENT
  Age: 13 Year
  Sex: Male

DRUGS (4)
  1. DICLOFENAC SODIUM. [Suspect]
     Active Substance: DICLOFENAC SODIUM
     Indication: MACULAR HOLE
     Dosage: UNK
     Route: 065
  2. DEXAMETHASONE. [Suspect]
     Active Substance: DEXAMETHASONE
     Indication: MACULAR HOLE
     Dosage: UNK
     Route: 047
  3. DICLOFENAC SODIUM. [Suspect]
     Active Substance: DICLOFENAC SODIUM
     Indication: CYSTOID MACULAR OEDEMA
     Dosage: UNK
     Route: 047
  4. DEXAMETHASONE. [Suspect]
     Active Substance: DEXAMETHASONE
     Indication: CYSTOID MACULAR OEDEMA
     Dosage: UNK
     Route: 065

REACTIONS (4)
  - Macular hole [Recovered/Resolved]
  - Product use in unapproved indication [Unknown]
  - Ocular hypertension [Recovered/Resolved]
  - Product administered at inappropriate site [Unknown]
